FAERS Safety Report 5572141-7 (Version None)
Quarter: 2007Q4

REPORT INFORMATION
  Report Type: 
  Country: None (occurrence: None)
  Receive Date: 20071221
  Receipt Date: 20071213
  Transmission Date: 20080405
  Serious: Yes (Other)
  Sender: FDA-Public Use
  Company Number: US-ABBOTT-07P-163-0362132-00

PATIENT
  Sex: Female
  Weight: 125 kg

DRUGS (11)
  1. HUMIRA [Suspect]
     Indication: PSORIATIC ARTHROPATHY
     Route: 058
     Dates: start: 20060910, end: 20061017
  2. HUMIRA [Suspect]
     Indication: PSORIASIS
  3. OLMESARTAN MEDOXOMIL [Concomitant]
     Indication: HYPERTENSION
     Route: 048
     Dates: start: 20060910, end: 20060929
  4. BENICAR HCT [Concomitant]
     Indication: HYPERTENSION
     Route: 048
     Dates: start: 20060930, end: 20061017
  5. CENTRUM [Concomitant]
     Indication: DRUG USE FOR UNKNOWN INDICATION
     Route: 048
     Dates: start: 20060910, end: 20061113
  6. COFFEE [Concomitant]
     Indication: DRUG USE FOR UNKNOWN INDICATION
     Dosage: SERVIN (UNIT SHOT)
     Route: 048
     Dates: start: 20060910, end: 20061018
  7. IBUPROFEN [Concomitant]
     Indication: HEADACHE
     Route: 048
     Dates: start: 20060901, end: 20060930
  8. FOLIC ACID [Concomitant]
     Indication: VITAMIN SUPPLEMENTATION
     Route: 048
     Dates: start: 20060910, end: 20061113
  9. TRIAMCINOLONE [Concomitant]
     Indication: PSORIATIC ARTHROPATHY
     Route: 061
     Dates: start: 20060910, end: 20061017
  10. BETAMETHASONE [Concomitant]
     Indication: PSORIATIC ARTHROPATHY
     Dosage: FACE, SCALP (ROUTE)
     Route: 061
     Dates: start: 20071002, end: 20071015
  11. TRIAMCINOLONE [Concomitant]
     Route: 061
     Dates: start: 20060910, end: 20061017

REACTIONS (2)
  - ABORTION SPONTANEOUS [None]
  - NASOPHARYNGITIS [None]
